FAERS Safety Report 7950327-1 (Version None)
Quarter: 2011Q4

REPORT INFORMATION
  Report Type: 
  Country: None (occurrence: None)
  Receive Date: 20111130
  Receipt Date: 20111117
  Transmission Date: 20120403
  Serious: Yes (Death)
  Sender: FDA-Public Use
  Company Number: ES-ELI_LILLY_AND_COMPANY-ES201108008297

PATIENT
  Sex: Male
  Weight: 80 kg

DRUGS (2)
  1. BUTO-ASMA [Concomitant]
     Indication: LUNG DISORDER
     Dosage: UNK, PRN
  2. FORTEO [Suspect]
     Indication: OSTEOPOROSIS
     Dosage: 20 UG, QD
     Route: 058
     Dates: start: 20091001, end: 20110615

REACTIONS (1)
  - LUNG DISORDER [None]
